FAERS Safety Report 4317600-X (Version None)
Quarter: 2004Q1

REPORT INFORMATION
  Report Type: 
  Country: None (occurrence: None)
  Receive Date: 20040305
  Receipt Date: 20040204
  Transmission Date: 20041129
  Serious: Yes (Hospitalization)
  Sender: FDA-Public Use
  Company Number: US-SHR-04-020847

PATIENT
  Sex: Male

DRUGS (1)
  1. CAMPATH [Suspect]
     Indication: CHRONIC LYMPHOCYTIC LEUKAEMIA
     Dosage: 3 MG, 1 DOSE OVER 2 HOURS, INTRAVENOUS
     Route: 042
     Dates: start: 20040202, end: 20040202

REACTIONS (2)
  - HYPOTENSION [None]
  - LIVER FUNCTION TEST ABNORMAL [None]
